FAERS Safety Report 7318622-7 (Version None)
Quarter: 2011Q1

REPORT INFORMATION
  Report Type: 
  Country: None (occurrence: None)
  Receive Date: 20110228
  Receipt Date: 20110222
  Transmission Date: 20110831
  Serious: Yes (Death, Other)
  Sender: FDA-Public Use
  Company Number: CO-ASTELLAS-2011US000256

PATIENT

DRUGS (2)
  1. PROGRAF [Suspect]
     Indication: HEART TRANSPLANT
     Dosage: UNK
     Route: 065
     Dates: end: 20101201
  2. WARFARIN SODIUM [Concomitant]
     Indication: ANTICOAGULANT THERAPY
     Dosage: UNK
     Route: 065

REACTIONS (3)
  - SUTURE RELATED COMPLICATION [None]
  - INCISION SITE HAEMORRHAGE [None]
  - PSEUDOMONAS INFECTION [None]
